FAERS Safety Report 7669134-2 (Version None)
Quarter: 2011Q3

REPORT INFORMATION
  Report Type: 
  Country: None (occurrence: None)
  Receive Date: 20110808
  Receipt Date: 20110725
  Transmission Date: 20111222
  Serious: Yes (Other)
  Sender: FDA-Public Use
  Company Number: PHHY2011JP63662

PATIENT

DRUGS (1)
  1. ZOLEDRONIC ACID [Suspect]
     Indication: BONE LESION
     Dosage: UNK

REACTIONS (4)
  - PARONYCHIA [None]
  - PATHOLOGICAL FRACTURE [None]
  - OSTEOMYELITIS [None]
  - SPINAL CORD COMPRESSION [None]
